FAERS Safety Report 4852507-0 (Version None)
Quarter: 2005Q4

REPORT INFORMATION
  Report Type: 
  Country: None (occurrence: None)
  Receive Date: 20051213
  Receipt Date: 20051202
  Transmission Date: 20060501
  Serious: Yes (Hospitalization)
  Sender: FDA-Public Use
  Company Number: PHHO2005FR18980

PATIENT
  Age: 31 Year
  Sex: Male

DRUGS (12)
  1. CYCLOSPORINE [Suspect]
     Indication: RENAL TRANSPLANT
     Dosage: 350 MG/DAY
     Route: 048
     Dates: start: 20050721, end: 20051107
  2. CELLCEPT [Suspect]
     Indication: RENAL TRANSPLANT
     Dosage: 2 G/DAY
     Route: 048
     Dates: start: 20050308
  3. CELLCEPT [Suspect]
     Dosage: 1500 MG/DAY
     Route: 048
  4. DACLIZUMAB [Concomitant]
     Dosage: 65 MG, ONCE/SINGLE
     Route: 042
     Dates: start: 20050308, end: 20050308
  5. DACLIZUMAB [Concomitant]
     Dosage: 65 MG, ONCE/SINGLE
     Route: 042
     Dates: start: 20050322, end: 20050322
  6. CORTICOSTEROIDS [Suspect]
     Dosage: 7.5 MG/DAY
     Route: 048
     Dates: start: 20050308, end: 20050919
  7. CORTICOSTEROIDS [Suspect]
     Dosage: 70 MG/DAY
     Route: 040
     Dates: start: 20051107
  8. SIROLIMUS [Concomitant]
     Dosage: 2 MG/DAY
     Route: 048
     Dates: start: 20050604, end: 20050720
  9. AMLOR [Concomitant]
     Dates: start: 20050513
  10. APROVEL [Concomitant]
     Dates: start: 20050408
  11. CELIPROLOL [Concomitant]
     Dates: start: 20050412
  12. MOPRAL [Concomitant]
     Dates: start: 20050302

REACTIONS (6)
  - BIOPSY KIDNEY [None]
  - BLOOD CREATININE INCREASED [None]
  - GLOMERULONEPHRITIS PROLIFERATIVE [None]
  - PROTEINURIA [None]
  - RENAL IMPAIRMENT [None]
  - TRANSPLANT REJECTION [None]
